FAERS Safety Report 6809493-3 (Version None)
Quarter: 2010Q2

REPORT INFORMATION
  Report Type: 
  Country: None (occurrence: None)
  Receive Date: 20100630
  Receipt Date: 20100621
  Transmission Date: 20101027
  Serious: Yes (Other)
  Sender: FDA-Public Use
  Company Number: JP-BRISTOL-MYERS SQUIBB COMPANY-15157860

PATIENT
  Age: 59 Year
  Sex: Male
  Weight: 108 kg

DRUGS (5)
  1. METGLUCO [Suspect]
     Indication: DIABETES MELLITUS
     Dates: start: 20100528, end: 20100501
  2. SULFONYLUREA [Concomitant]
     Indication: DIABETES MELLITUS
  3. INSULIN [Concomitant]
  4. MELBIN [Concomitant]
     Indication: DIABETES MELLITUS
  5. JANUVIA [Concomitant]

REACTIONS (3)
  - DIZZINESS [None]
  - LOSS OF CONSCIOUSNESS [None]
  - PRODUCT SUBSTITUTION ISSUE [None]
